FAERS Safety Report 7953502-5 (Version None)
Quarter: 2011Q4

REPORT INFORMATION
  Report Type: 
  Country: None (occurrence: None)
  Receive Date: 20111202
  Receipt Date: 20111128
  Transmission Date: 20120403
  Serious: Yes (Death, Hospitalization, Other)
  Sender: FDA-Public Use
  Company Number: GB-PFIZER INC-2011186688

PATIENT
  Age: 71 Year
  Sex: Male
  Weight: 50 kg

DRUGS (9)
  1. RANITIDINE [Concomitant]
     Dosage: 300 MG, 2X/DAY
     Route: 048
  2. SIMVASTATIN [Concomitant]
     Dosage: 40 MG, 1X/DAY
  3. VENLAFAXINE HCL [Suspect]
     Dosage: 75 MG, 2X/DAY
     Route: 048
     Dates: start: 20110119
  4. ACETYLSALICYLIC ACID [Concomitant]
     Dosage: 75 MG, 1X/DAY
  5. BISOPROLOL [Concomitant]
     Dosage: 1.25 MG, 1X/DAY
  6. VALPROATE SODIUM [Concomitant]
     Dosage: 800 MG, 1X/DAY
     Dates: start: 20101216
  7. OLANZAPINE [Concomitant]
     Dosage: 5 MG, UNK
     Route: 048
     Dates: start: 20110119
  8. VENLAFAXINE HCL [Suspect]
     Indication: DEPRESSION
     Dosage: 37.5 MG, 2X/DAY
     Route: 048
     Dates: start: 20101222, end: 20110118
  9. CLOPIDOGREL [Concomitant]
     Dosage: 75 MG, 1X/DAY

REACTIONS (10)
  - BRADYCARDIA [None]
  - NASOPHARYNGITIS [None]
  - TOXICITY TO VARIOUS AGENTS [None]
  - TREMOR [None]
  - PAIN [None]
  - ABDOMINAL PAIN [None]
  - VOMITING [None]
  - SOMNOLENCE [None]
  - UNRESPONSIVE TO STIMULI [None]
  - HYPOTENSION [None]
